FAERS Safety Report 21842575 (Version 1)
Quarter: 2023Q1

REPORT INFORMATION
  Report Type: Spontaneous
  Country: US (occurrence: US)
  Receive Date: 20230110
  Receipt Date: 20230110
  Transmission Date: 20230417
  Serious: No
  Sender: FDA-Public Use
  Company Number: US-SA-SAC20230109000032

PATIENT
  Sex: Female

DRUGS (1)
  1. DUPIXENT [Suspect]
     Active Substance: DUPILUMAB
     Dosage: 300 MG; FREQUENCY: OTHER
     Route: 058

REACTIONS (7)
  - Eye pain [Unknown]
  - Condition aggravated [Unknown]
  - Photophobia [Unknown]
  - Condition aggravated [Unknown]
  - COVID-19 [Unknown]
  - Eye swelling [Unknown]
  - Condition aggravated [Unknown]
